FAERS Safety Report 10197034 (Version 1)
Quarter: 2014Q2

REPORT INFORMATION
  Report Type: Spontaneous
  Country: GB (occurrence: GB)
  Receive Date: 20140527
  Receipt Date: 20140527
  Transmission Date: 20141212
  Serious: Yes (Life-Threatening)
  Sender: FDA-Public Use
  Company Number: GB-WATSON-2014-10654

PATIENT
  Age: 70 Year
  Sex: Male
  Weight: 73 kg

DRUGS (5)
  1. OMEPRAZOLE (UNKNOWN) [Suspect]
     Indication: PRODUCT USED FOR UNKNOWN INDICATION
     Dosage: UNK
     Route: 065
     Dates: start: 20140409
  2. OMEPRAZOLE (UNKNOWN) [Suspect]
     Dosage: UNK
     Route: 065
     Dates: start: 20140303, end: 20140331
  3. OMEPRAZOLE (UNKNOWN) [Suspect]
     Dosage: UNK
     Route: 065
     Dates: start: 20140106, end: 20140221
  4. BISACODYL [Concomitant]
     Indication: PRODUCT USED FOR UNKNOWN INDICATION
     Dosage: UNK
     Route: 065
     Dates: start: 20140424, end: 20140429
  5. DOMPERIDONE [Concomitant]
     Indication: PRODUCT USED FOR UNKNOWN INDICATION
     Dosage: UNK
     Route: 065
     Dates: start: 20140415

REACTIONS (2)
  - Tubulointerstitial nephritis [Recovering/Resolving]
  - Renal failure acute [Unknown]
